FAERS Safety Report 7571768-0 (Version None)
Quarter: 2011Q2

REPORT INFORMATION
  Report Type: 
  Country: None (occurrence: None)
  Receive Date: 20110624
  Receipt Date: 20110621
  Transmission Date: 20111010
  Serious: Yes (Other)
  Sender: FDA-Public Use
  Company Number: GB-PFIZER INC-2011136613

PATIENT
  Age: 61 Year
  Sex: Female

DRUGS (11)
  1. MISOPROSTOL [Suspect]
     Dosage: 500 MG TWICE DAILY
  2. DICLOFENAC [Concomitant]
  3. SERETIDE [Concomitant]
  4. OXYBUTYNIN [Concomitant]
     Dosage: 3 MG, 2X/DAY
  5. CITALOPRAM [Concomitant]
     Dosage: 10 MG TWICE DAILY
  6. LANSOPRAZOLE [Concomitant]
     Dosage: 30 MG, 1X/DAY
  7. ACETAMINOPHEN [Suspect]
     Dosage: 8 DF DAILY
  8. AMITRIPTYLINE HCL [Suspect]
     Dosage: UNK MG, UNK
  9. NAPROXEN [Suspect]
     Dosage: 500 MG, 2X/DAY
  10. VENTOLIN HFA [Concomitant]
     Dosage: UNK
  11. TRAMADOL HCL [Suspect]
     Dosage: 8 DF DAILY

REACTIONS (4)
  - ASTHMA [None]
  - IDIOPATHIC THROMBOCYTOPENIC PURPURA [None]
  - RHEUMATOID ARTHRITIS [None]
  - OSTEOARTHRITIS [None]
